FAERS Safety Report 5622884-1 (Version None)
Quarter: 2008Q1

REPORT INFORMATION
  Report Type: 
  Country: None (occurrence: None)
  Receive Date: 20080207
  Receipt Date: 20080207
  Transmission Date: 20080703
  Serious: No
  Sender: FDA-Public Use
  Company Number: None

PATIENT
  Age: 37 Year
  Sex: Female

DRUGS (2)
  1. CELEBREX [Suspect]
     Dates: start: 20060811, end: 20070204
  2. TYLENOL (CAPLET) [Concomitant]

REACTIONS (3)
  - CHOLESTASIS [None]
  - HEPATITIS ACUTE [None]
  - LIVER INJURY [None]
